FAERS Safety Report 5487832-6 (Version None)
Quarter: 2007Q3

REPORT INFORMATION
  Report Type: 
  Country: None (occurrence: None)
  Receive Date: 20070925
  Receipt Date: 20070904
  Transmission Date: 20080115
  Serious: No
  Sender: FDA-Public Use
  Company Number: 2007US001264

PATIENT
  Age: 60 Year
  Sex: Male

DRUGS (5)
  1. VESICARE [Suspect]
     Indication: BLADDER DISORDER
     Dosage: 5 MG, ORAL
     Route: 048
  2. AMANTADINE HCL [Concomitant]
  3. SELEGILINE HCL [Concomitant]
  4. MIRAPEX [Concomitant]
  5. SINEMET (CARBIDOPA) [Concomitant]

REACTIONS (1)
  - URINARY RETENTION [None]
